FAERS Safety Report 18254791 (Version 1)
Quarter: 2020Q3

REPORT INFORMATION
  Report Type: Report from Study
  Country: None (occurrence: GR)
  Receive Date: 20200911
  Receipt Date: 20200911
  Transmission Date: 20201103
  Serious: Yes (Hospitalization)
  Sender: FDA-Public Use
  Company Number: GR-ABBVIE-20K-066-3559686-00

PATIENT
  Age: 69 Year
  Sex: Male

DRUGS (4)
  1. CLONOTRIL [Concomitant]
     Active Substance: CLONAZEPAM
     Indication: PRODUCT USED FOR UNKNOWN INDICATION
     Route: 048
  2. DUODOPA [Suspect]
     Active Substance: CARBIDOPA\LEVODOPA
     Indication: PARKINSON^S DISEASE
     Dosage: MD: 7.0ML; CONTINUOUS RATE: 3.7ML/H; ED: 1.5ML
     Route: 050
     Dates: start: 20191016
  3. DUODOPA [Suspect]
     Active Substance: CARBIDOPA\LEVODOPA
  4. ZOLOTRIN [Concomitant]
     Active Substance: SERTRALINE HYDROCHLORIDE
     Indication: PRODUCT USED FOR UNKNOWN INDICATION
     Route: 048

REACTIONS (7)
  - Hyperhidrosis [Recovered/Resolved]
  - Respiratory tract infection [Unknown]
  - Vomiting [Recovered/Resolved]
  - Cerebral haemorrhage [Unknown]
  - Cerebral thrombosis [Unknown]
  - Pyrexia [Recovered/Resolved]
  - General physical health deterioration [Not Recovered/Not Resolved]

NARRATIVE: CASE EVENT DATE: 20200816
